FAERS Safety Report 9939800 (Version 1)
Quarter: 2014Q1

REPORT INFORMATION
  Report Type: Report from Study
  Country: US (occurrence: US)
  Receive Date: 20140303
  Receipt Date: 20140303
  Transmission Date: 20141002
  Serious: No
  Sender: FDA-Public Use
  Company Number: US-ABBVIE-13P-163-1033276-00

PATIENT
  Age: 58 Year
  Sex: Female

DRUGS (5)
  1. HUMIRA [Suspect]
     Indication: RHEUMATOID ARTHRITIS
     Dates: start: 20120916
  2. CELEBREX [Concomitant]
     Indication: ARTHRITIS
  3. CYMBALTA [Concomitant]
     Indication: ARTHRITIS
     Dosage: 60 MG DAILY
  4. DIOVAN [Concomitant]
     Indication: HYPERTENSION
     Dosage: 160 MG DAILIY
  5. DEXILANT [Concomitant]
     Indication: GASTROOESOPHAGEAL REFLUX DISEASE
     Dosage: 60 MG DAILY

REACTIONS (7)
  - Device malfunction [Unknown]
  - Drug dose omission [Unknown]
  - Fall [Not Recovered/Not Resolved]
  - Headache [Unknown]
  - Contusion [Unknown]
  - Periorbital contusion [Unknown]
  - Ecchymosis [Unknown]
